FAERS Safety Report 17307212 (Version 1)
Quarter: 2020Q1

REPORT INFORMATION
  Report Type: Spontaneous
  Country: US (occurrence: US)
  Receive Date: 20200123
  Receipt Date: 20200123
  Transmission Date: 20200409
  Serious: Yes (Other)
  Sender: FDA-Public Use
  Company Number: US-JUBILANT CADISTA PHARMACEUTICALS-2020JUB00029

PATIENT
  Age: 3 Year
  Sex: Female

DRUGS (2)
  1. LEVETIRACETAM. [Suspect]
     Active Substance: LEVETIRACETAM
     Indication: EPILEPSY
     Route: 065
  2. OXCARBAZEPINE. [Suspect]
     Active Substance: OXCARBAZEPINE
     Indication: EPILEPSY
     Route: 065

REACTIONS (1)
  - Epilepsy [Recovered/Resolved]
